FAERS Safety Report 14352100 (Version 1)
Quarter: 2018Q1

REPORT INFORMATION
  Report Type: Spontaneous
  Country: US (occurrence: US)
  Receive Date: 20180103
  Receipt Date: 20180103
  Transmission Date: 20180509
  Serious: Yes (Life-Threatening)
  Sender: FDA-Public Use
  Company Number: None

PATIENT
  Age: 20 Year
  Sex: Female
  Weight: 75.8 kg

DRUGS (1)
  1. VARUBI [Suspect]
     Active Substance: ROLAPITANT
     Indication: VOMITING
     Route: 042
     Dates: start: 20171229, end: 20171229

REACTIONS (4)
  - Loss of consciousness [None]
  - Respiratory arrest [None]
  - Urinary incontinence [None]
  - Infusion related reaction [None]

NARRATIVE: CASE EVENT DATE: 20171229
